FAERS Safety Report 6275254-X (Version None)
Quarter: 2009Q3

REPORT INFORMATION
  Report Type: 
  Country: None (occurrence: None)
  Receive Date: 20090721
  Receipt Date: 20090708
  Transmission Date: 20100115
  Serious: Yes (Hospitalization, Congenital Anomaly)
  Sender: FDA-Public Use
  Company Number: A0681435A

PATIENT
  Sex: Female
  Weight: 3 kg

DRUGS (3)
  1. PAXIL [Suspect]
     Indication: DEPRESSION
     Dates: start: 20000101, end: 20010101
  2. PAXIL CR [Suspect]
     Indication: DEPRESSION
     Dates: start: 20000101, end: 20010101
  3. VITAMIN TAB [Concomitant]

REACTIONS (13)
  - ABNORMAL BEHAVIOUR [None]
  - ATRIAL SEPTAL DEFECT [None]
  - CARDIAC MURMUR [None]
  - CARDIOMEGALY [None]
  - CONGENITAL ANOMALY [None]
  - CONGENITAL TRICUSPID VALVE INCOMPETENCE [None]
  - CYANOSIS NEONATAL [None]
  - DRUG EXPOSURE DURING PREGNANCY [None]
  - HEART DISEASE CONGENITAL [None]
  - HYPOGLYCAEMIA NEONATAL [None]
  - LEARNING DISORDER [None]
  - MATERNAL DRUGS AFFECTING FOETUS [None]
  - VASCULAR RESISTANCE PULMONARY DECREASED [None]
